FAERS Safety Report 13553220 (Version 1)
Quarter: 2017Q2

REPORT INFORMATION
  Report Type: Spontaneous
  Country: US (occurrence: US)
  Receive Date: 20170516
  Receipt Date: 20170516
  Transmission Date: 20170830
  Serious: Yes (Other)
  Sender: FDA-Public Use
  Company Number: None

PATIENT
  Age: 43 Year
  Sex: Male
  Weight: 91.8 kg

DRUGS (1)
  1. ESCITALOPRAM [Suspect]
     Active Substance: ESCITALOPRAM OXALATE
     Indication: ANXIETY
     Dosage: ?          QUANTITY:1 TABLET(S);?
     Route: 048
     Dates: start: 20170428, end: 20170428

REACTIONS (12)
  - Rheumatoid arthritis [None]
  - Insomnia [None]
  - Erythema [None]
  - Musculoskeletal discomfort [None]
  - Depersonalisation/derealisation disorder [None]
  - Condition aggravated [None]
  - Paraesthesia [None]
  - Burning sensation [None]
  - Vomiting [None]
  - Stress [None]
  - Inflammation [None]
  - Anxiety [None]

NARRATIVE: CASE EVENT DATE: 20170428
